FAERS Safety Report 8891101 (Version 1)
Quarter: 2012Q4

REPORT INFORMATION
  Report Type: 
  Country: US (occurrence: US)
  Receive Date: 20121107
  Receipt Date: 20121107
  Transmission Date: 20130627
  Serious: Yes (Other)
  Sender: FDA-Public Use
  Company Number: US-BAYER-2012-115521

PATIENT
  Age: 83 Year
  Sex: Male
  Weight: 83.9 kg

DRUGS (6)
  1. BAYER ADVANCED ASPIRIN EXTRA STRENGTH [Suspect]
     Indication: BACK ACHE
     Dosage: 2 DF, PRN
     Route: 048
     Dates: start: 2012
  2. BAYER ADVANCED ASPIRIN EXTRA STRENGTH [Suspect]
     Indication: MUSCULOSKELETAL PAIN
  3. HYDROCODONE [Concomitant]
     Indication: ABDOMINAL PAIN
  4. HYDROCODONE [Concomitant]
     Indication: CHEST PAIN
  5. METHADONE [Concomitant]
     Indication: ABDOMINAL PAIN
  6. METHADONE [Concomitant]
     Indication: CHEST PAIN

REACTIONS (4)
  - Memory impairment [None]
  - Abdominal pain [Recovered/Resolved]
  - Chest pain [None]
  - Abdominal pain upper [Recovered/Resolved]
